FAERS Safety Report 8255240-0 (Version None)
Quarter: 2012Q1

REPORT INFORMATION
  Report Type: 
  Country: None (occurrence: None)
  Receive Date: 20120322
  Receipt Date: 20120124
  Transmission Date: 20120608
  Serious: Yes (Hospitalization)
  Sender: FDA-Public Use
  Company Number: UTC-013911

PATIENT
  Age: 46 Year
  Sex: Female
  Weight: 55.59 kg

DRUGS (4)
  1. DIURETICS (DIURETICS) [Concomitant]
  2. TYVASO [Suspect]
     Indication: PULMONARY ARTERIAL HYPERTENSION
     Dosage: 168;192 MCG (42;48 MCG, 4 IN 1 D) INHALATION
     Route: 055
     Dates: start: 20111102
  3. TYVASO [Suspect]
  4. ADCIRCA [Concomitant]

REACTIONS (1)
  - TRACHEAL DISORDER [None]
